FAERS Safety Report 8629247 (Version 7)
Quarter: 2013Q3

REPORT INFORMATION
  Report Type: Spontaneous
  Country: US (occurrence: US)
  Receive Date: 20120621
  Receipt Date: 20130712
  Transmission Date: 20140515
  Serious: Yes (Other)
  Sender: FDA-Public Use
  Company Number: US-PFIZER INC-2012147869

PATIENT
  Age: 57 Year
  Sex: Female
  Weight: 81.63 kg

DRUGS (15)
  1. CHANTIX [Suspect]
     Dosage: UNK
  2. LIPITOR [Suspect]
     Indication: BLOOD CHOLESTEROL INCREASED
     Dosage: 20 MG/DAY
  3. LYRICA [Suspect]
     Indication: FIBROMYALGIA
     Dosage: 150 MG, 2X/DAY
     Route: 048
     Dates: start: 201110, end: 201206
  4. LYRICA [Suspect]
     Dosage: 150 MG, 2X/DAY
     Route: 048
  5. VISTARIL [Suspect]
     Indication: HYPERSENSITIVITY
     Dosage: 50 MG, 4X/DAY
  6. GREEN COFFEE BEAN EXTRACT [Suspect]
     Dosage: UNK
  7. HYDROCHLOROTHIAZIDE/TRIAMTERENE [Concomitant]
     Dosage: UNK
  8. CARISOPRODOL [Concomitant]
     Dosage: 250 MG, 4X/DAY
  9. ACETAMINOPHEN W/HYDROCODONE BITARTRATE [Concomitant]
     Dosage: UNK
  10. POTASSIUM [Concomitant]
     Dosage: UNK
  11. METOPROLOL [Concomitant]
     Indication: HEART RATE INCREASED
     Dosage: 50 MG/DAY
  12. METOPROLOL [Concomitant]
     Indication: CARDIAC DISORDER
  13. CLONAZEPAM [Concomitant]
     Indication: ANXIETY
     Dosage: 0.5 MG, 4X/DAY
  14. ASPIRIN [Concomitant]
     Indication: CARDIAC DISORDER
     Dosage: 81 MG/DAY
  15. NORCO [Concomitant]
     Indication: MUSCULOSKELETAL DISCOMFORT
     Dosage: 10 MG, UNK

REACTIONS (13)
  - Parkinson^s disease [Unknown]
  - Gait disturbance [Unknown]
  - Chest pain [Unknown]
  - Dyspnoea [Unknown]
  - Palpitations [Unknown]
  - Pelvic pain [Unknown]
  - Arthralgia [Not Recovered/Not Resolved]
  - Myalgia [Not Recovered/Not Resolved]
  - Pain in extremity [Unknown]
  - Pain [Not Recovered/Not Resolved]
  - Cough [Unknown]
  - Tremor [Unknown]
  - Arrhythmia [Unknown]
